FAERS Safety Report 10180194 (Version 2)
Quarter: 2017Q4

REPORT INFORMATION
  Report Type: Spontaneous
  Country: US (occurrence: US)
  Receive Date: 20140519
  Receipt Date: 20171018
  Transmission Date: 20180320
  Serious: No
  Sender: FDA-Public Use
  Company Number: US-AMGEN INC.-USASP2013086459

PATIENT
  Age: 75 Year
  Sex: Female

DRUGS (2)
  1. PROLIA [Suspect]
     Active Substance: DENOSUMAB
     Indication: OSTEOPOROSIS POSTMENOPAUSAL
  2. PROLIA [Suspect]
     Active Substance: DENOSUMAB
     Indication: OSTEOPENIA
     Dosage: UNK, Q6MO
     Route: 065
     Dates: start: 2011

REACTIONS (5)
  - Tooth disorder [Unknown]
  - Off label use [Unknown]
  - Insomnia [Unknown]
  - Tooth loss [Unknown]
  - Tooth fracture [Unknown]

NARRATIVE: CASE EVENT DATE: 201311
